FAERS Safety Report 4337082-1 (Version None)
Quarter: 2004Q2

REPORT INFORMATION
  Report Type: 
  Country: None (occurrence: None)
  Receive Date: 20040407
  Receipt Date: 20040324
  Transmission Date: 20050107
  Serious: Yes (Death)
  Sender: FDA-Public Use
  Company Number: RENA-10723

PATIENT
  Age: 77 Year
  Sex: Male

DRUGS (1)
  1. RENAGEL [Suspect]
     Indication: HYPERPHOSPHATAEMIA
     Dosage: 1.6 G TID PO
     Route: 048
     Dates: start: 20030501

REACTIONS (6)
  - COUGH [None]
  - DIARRHOEA [None]
  - FOREIGN BODY TRAUMA [None]
  - FREQUENT BOWEL MOVEMENTS [None]
  - LOOSE STOOLS [None]
  - RETCHING [None]
